FAERS Safety Report 16896586 (Version 1)
Quarter: 2019Q4

REPORT INFORMATION
  Report Type: Spontaneous
  Country: NL (occurrence: NL)
  Receive Date: 20191008
  Receipt Date: 20191008
  Transmission Date: 20200122
  Serious: Yes (Other)
  Sender: FDA-Public Use
  Company Number: NL-GILEAD-2019-0432126

PATIENT
  Sex: Male
  Weight: 65 kg

DRUGS (7)
  1. ESOMEPRAZOL [ESOMEPRAZOLE] [Suspect]
     Active Substance: ESOMEPRAZOLE
     Indication: DIAPHRAGMATIC HERNIA
     Dosage: 1 X PER DAG RESP.100 MG
     Route: 048
     Dates: start: 2010
  2. LABETALOL [Suspect]
     Active Substance: LABETALOL\LABETALOL HYDROCHLORIDE
     Dosage: 1 X PER DAG RESP.4 MG
     Route: 048
     Dates: start: 2010
  3. DOXAZOSINE [DOXAZOSIN] [Suspect]
     Active Substance: DOXAZOSIN MESYLATE
     Indication: HYPERTENSION
     Dosage: 1 X PER DAG RESP.4 MG
     Route: 048
     Dates: start: 2010
  4. DOXAZOSINE [DOXAZOSIN] [Suspect]
     Active Substance: DOXAZOSIN MESYLATE
     Dosage: 1 X PER DAG RESP.100 MG
     Route: 048
     Dates: start: 2010
  5. LABETALOL [Suspect]
     Active Substance: LABETALOL\LABETALOL HYDROCHLORIDE
     Indication: HYPERTENSION
     Dosage: 1 X PER DAG RESP.40 MG
     Route: 048
     Dates: start: 2010
  6. HEPSERA [Suspect]
     Active Substance: ADEFOVIR DIPIVOXIL
     Indication: CHRONIC HEPATITIS B
     Dosage: 1 TABLET PER DAG
     Route: 048
     Dates: start: 2005
  7. ESOMEPRAZOL [ESOMEPRAZOLE] [Suspect]
     Active Substance: ESOMEPRAZOLE
     Dosage: 1 X PER DAG RESP.40 MG
     Route: 048
     Dates: start: 2010

REACTIONS (1)
  - Deafness [Recovered/Resolved with Sequelae]
